FAERS Safety Report 6526951-X (Version None)
Quarter: 2009Q4

REPORT INFORMATION
  Report Type: 
  Country: None (occurrence: None)
  Receive Date: 20091229
  Receipt Date: 20091214
  Transmission Date: 20100525
  Serious: Yes (Other)
  Sender: FDA-Public Use
  Company Number: 002725

PATIENT
  Sex: Male
  Weight: 62.3 kg

DRUGS (2)
  1. VIMPAT [Suspect]
     Indication: EPILEPSY
     Dosage: (ORAL)
     Route: 048
     Dates: start: 20080901, end: 20090101
  2. RUFINAMIDE [Concomitant]

REACTIONS (2)
  - AGGRESSION [None]
  - IRRITABILITY [None]
